FAERS Safety Report 20683935 (Version 1)
Quarter: 2022Q2

REPORT INFORMATION
  Report Type: Spontaneous
  Country: US (occurrence: None)
  Receive Date: 20220407
  Receipt Date: 20220407
  Transmission Date: 20220721
  Serious: Yes (Hospitalization, Other)
  Sender: FDA-Public Use
  Company Number: US-Fresenius Kabi-FK202204058

PATIENT
  Age: 50 Year
  Sex: Female

DRUGS (4)
  1. FLUOROURACIL [Suspect]
     Active Substance: FLUOROURACIL
     Indication: Colon cancer stage IV
     Dosage: 5- FLUOROURACIL?FOLFIRI REGIMEN?INFUSION
  2. FLUOROURACIL [Suspect]
     Active Substance: FLUOROURACIL
     Dosage: 5- FLUOROURACIL?FOLFIRI REGIMEN?BOLUS
  3. IRINOTECAN [Concomitant]
     Active Substance: IRINOTECAN
     Indication: Colon cancer stage IV
     Dosage: FOLFIRI REGIMEN
  4. LEUCOVORIN [Concomitant]
     Active Substance: LEUCOVORIN
     Indication: Colon cancer stage IV
     Dosage: FOLFIRI REGIMEN

REACTIONS (1)
  - Arteriospasm coronary [Recovered/Resolved]
